FAERS Safety Report 12185325 (Version 1)
Quarter: 2016Q1

REPORT INFORMATION
  Report Type: Report from Study
  Country: US (occurrence: US)
  Receive Date: 20160316
  Receipt Date: 20160316
  Transmission Date: 20160526
  Serious: Yes (Other)
  Sender: FDA-Public Use
  Company Number: US-ACTELION-A-US2016-132714

PATIENT
  Age: 68 Year
  Sex: Female

DRUGS (1)
  1. TRACLEER [Suspect]
     Active Substance: BOSENTAN
     Indication: PULMONARY ARTERIAL HYPERTENSION
     Dosage: UNK
     Route: 048
     Dates: start: 20130501

REACTIONS (4)
  - Weight fluctuation [Recovered/Resolved]
  - Vulvovaginal mycotic infection [Unknown]
  - Oral fungal infection [Unknown]
  - Foot operation [Unknown]

NARRATIVE: CASE EVENT DATE: 20160123
